FAERS Safety Report 4850888-5 (Version None)
Quarter: 2005Q4

REPORT INFORMATION
  Report Type: 
  Country: None (occurrence: None)
  Receive Date: 20051212
  Receipt Date: 20051201
  Transmission Date: 20060501
  Serious: Yes (Other)
  Sender: FDA-Public Use
  Company Number: BR-GLAXOSMITHKLINE-A0584701A

PATIENT
  Sex: Female

DRUGS (1)
  1. AVANDAMET [Suspect]
     Route: 048
     Dates: end: 20050901

REACTIONS (2)
  - BLOOD TRIGLYCERIDES INCREASED [None]
  - HEPATIC ENZYME ABNORMAL [None]
